FAERS Safety Report 14816004 (Version 5)
Quarter: 2018Q4

REPORT INFORMATION
  Report Type: Report from Study
  Country: DE (occurrence: DE)
  Receive Date: 20180426
  Receipt Date: 20181004
  Transmission Date: 20190204
  Serious: Yes (Other)
  Sender: FDA-Public Use
  Company Number: DE-TEVA-2018-DE-886178

PATIENT
  Age: 50 Year
  Sex: Male
  Weight: 74 kg

DRUGS (23)
  1. EMTRICITABINE [Suspect]
     Active Substance: EMTRICITABINE
     Indication: HIV INFECTION
     Dosage: 200 MILLIGRAM DAILY; 1 DF, QD
     Route: 065
     Dates: start: 20131118
  2. CEFUROXIM [Concomitant]
     Active Substance: CEFUROXIME
     Route: 065
     Dates: start: 20170313
  3. CEPHALEXIN                         /00145501/ [Concomitant]
     Active Substance: CEPHALEXIN
     Dates: start: 20150812, end: 20150815
  4. PEGASYS [Suspect]
     Active Substance: PEGINTERFERON ALFA-2A
     Indication: CHRONIC HEPATITIS C
     Dosage: 180 UG, Q1WK
     Route: 058
     Dates: start: 20131118, end: 20140109
  5. VIOFORM [Concomitant]
     Dosage: UNK
     Route: 065
     Dates: start: 20160613
  6. TENOFOVIR DISOPROXIL FUMARATE. [Suspect]
     Active Substance: TENOFOVIR DISOPROXIL FUMARATE
     Indication: HIV INFECTION
     Route: 065
     Dates: start: 20160613
  7. CEFTRIAXON [Concomitant]
     Active Substance: CEFTRIAXONE
     Dosage: UNK
     Route: 065
     Dates: start: 20150812, end: 20150815
  8. IBUPROFEN. [Concomitant]
     Active Substance: IBUPROFEN
     Dosage: 1-1-1
     Route: 065
     Dates: start: 20160613
  9. INDOMET (INDOMETACIN) [Concomitant]
     Active Substance: INDOMETHACIN
     Dosage: 50 MILLIGRAM DAILY; 50 MG, QD
     Route: 065
     Dates: start: 20140820
  10. ROCEPHIN [Concomitant]
     Active Substance: CEFTRIAXONE SODIUM
     Dosage: UNK
     Route: 065
     Dates: start: 20170313
  11. RIBAVIRIN. [Suspect]
     Active Substance: RIBAVIRIN
     Indication: CHRONIC HEPATITIS C
     Dosage: 1000 MILLIGRAM DAILY; 1000 MG, QD
     Route: 048
     Dates: start: 20131118, end: 20140109
  12. FUCICORT [Concomitant]
     Active Substance: BETAMETHASONE VALERATE\FUSIDIC ACID
     Dosage: UNK
     Route: 065
     Dates: start: 20140723
  13. VALTREX [Concomitant]
     Active Substance: VALACYCLOVIR HYDROCHLORIDE
     Dosage: 2 DOSAGE FORMS DAILY; 2-2-2-2
     Route: 065
     Dates: start: 20160613
  14. TRAMAL [Concomitant]
     Active Substance: TRAMADOL
     Dosage: UNK
     Route: 065
     Dates: start: 20160613
  15. RILPIVIRINE [Suspect]
     Active Substance: RILPIVIRINE
     Indication: HIV INFECTION
     Dosage: 25 MILLIGRAM DAILY;
     Route: 065
     Dates: start: 20160613
  16. EMTRICITABINE [Suspect]
     Active Substance: EMTRICITABINE
     Route: 065
     Dates: start: 20131118
  17. VAXIGRIP [Concomitant]
     Active Substance: INFLUENZA VIRUS VACCINE
     Dosage: UNK
     Route: 065
     Dates: start: 20151021, end: 20151021
  18. AZITHROMYCIN ANHYDROUS. [Concomitant]
     Active Substance: AZITHROMYCIN ANHYDROUS
     Dosage: 500 MILLIGRAM DAILY; 500 MG, QD
     Route: 065
     Dates: start: 20150630, end: 20150715
  19. AZITHROMYCIN ANHYDROUS. [Concomitant]
     Active Substance: AZITHROMYCIN ANHYDROUS
     Route: 065
     Dates: start: 20160613
  20. BISOPROLOL [Concomitant]
     Active Substance: BISOPROLOL
     Route: 065
     Dates: start: 20061101
  21. CEPHALEXIN                         /00145501/ [Concomitant]
     Active Substance: CEPHALEXIN
     Dosage: 1000 MILLIGRAM DAILY; 1-1-1
     Route: 065
     Dates: start: 20150812, end: 20150815
  22. AFLURIA NOS [Concomitant]
     Active Substance: INFLUENZA VIRUS VACCINE TRIVALENT TYPE A+B AFLURIA
     Dosage: 0.5 ML, UNK
     Route: 065
     Dates: start: 20171009, end: 20171009
  23. BETAISODONA [Concomitant]
     Active Substance: POVIDONE-IODINE
     Dosage: 30 G, UNK
     Route: 065
     Dates: start: 20150812, end: 20150915

REACTIONS (3)
  - Skin lesion [Recovered/Resolved]
  - Venous thrombosis [Recovered/Resolved]
  - Facial paresis [Recovered/Resolved]

NARRATIVE: CASE EVENT DATE: 20170306
